FAERS Safety Report 18758708 (Version 2)
Quarter: 2021Q1

REPORT INFORMATION
  Report Type: Report from Study
  Country: FR (occurrence: FR)
  Receive Date: 20210120
  Receipt Date: 20210330
  Transmission Date: 20210419
  Serious: Yes (Other)
  Sender: FDA-Public Use
  Company Number: FR-ADVANZ PHARMA-202101000309

PATIENT

DRUGS (8)
  1. HYDROCORTISONE. [Concomitant]
     Active Substance: HYDROCORTISONE
     Indication: COVID-19
     Dosage: UNK
     Dates: start: 20200405, end: 20200405
  2. SPIRAMYCIN [Concomitant]
     Active Substance: SPIRAMYCIN
     Indication: COVID-19
     Dosage: UNK
     Dates: start: 20200403, end: 20200409
  3. HYDROXYCHLOROQUINE SULFATE (AUTHORIZED GENERIC),PLAQUENIL [Suspect]
     Active Substance: HYDROXYCHLOROQUINE SULFATE
     Indication: CORONAVIRUS INFECTION
     Dosage: 1200 MG,  FILM?COATED TABLET
     Dates: start: 20200403, end: 20200408
  4. AMOXICILLIN. [Concomitant]
     Active Substance: AMOXICILLIN
     Indication: COVID-19
     Dosage: UNK
     Dates: start: 20200403, end: 20200407
  5. HYDROXYCHLOROQUINE SULFATE (AUTHORIZED GENERIC),PLAQUENIL [Suspect]
     Active Substance: HYDROXYCHLOROQUINE SULFATE
     Dosage: 400 MG, QD, FILM?COATED TABLET
     Route: 048
     Dates: start: 20200405, end: 20200407
  6. ENOXAPARIN [Concomitant]
     Active Substance: ENOXAPARIN
     Indication: COVID-19
     Dosage: UNK
     Dates: start: 20200403, end: 20200407
  7. HYDROXYCHLOROQUINE SULFATE (AUTHORIZED GENERIC),PLAQUENIL [Suspect]
     Active Substance: HYDROXYCHLOROQUINE SULFATE
     Dosage: 600 MG, BID, FILM?COATED TABLET
     Route: 048
     Dates: start: 20200404, end: 20200404
  8. ERYTHROMYCIN. [Concomitant]
     Active Substance: ERYTHROMYCIN
     Indication: COVID-19
     Dosage: UNK
     Dates: start: 20200404, end: 20200407

REACTIONS (9)
  - Hepatocellular injury [Recovered/Resolved]
  - COVID-19 [Unknown]
  - Hyponatraemia [Unknown]
  - Acute kidney injury [Recovered/Resolved]
  - Renal impairment [Unknown]
  - Condition aggravated [Unknown]
  - Transaminases increased [Unknown]
  - Septic shock [Unknown]
  - Off label use [Unknown]

NARRATIVE: CASE EVENT DATE: 20200404
